FAERS Safety Report 17745295 (Version 1)
Quarter: 2020Q2

REPORT INFORMATION
  Report Type: Spontaneous
  Country: ES (occurrence: ES)
  Receive Date: 20200505
  Receipt Date: 20200505
  Transmission Date: 20200714
  Serious: Yes (Hospitalization, Other)
  Sender: FDA-Public Use
  Company Number: ES-PFIZER INC-2020175600

PATIENT
  Age: 77 Year
  Sex: Female

DRUGS (1)
  1. LINEZOLID. [Suspect]
     Active Substance: LINEZOLID
     Indication: ENTEROCOCCAL INFECTION
     Dosage: 600 MG, 1X/DAY
     Route: 065
     Dates: start: 20200305, end: 20200311

REACTIONS (4)
  - Coronavirus infection [Unknown]
  - Hepatitis cholestatic [Recovered/Resolved]
  - Pneumonia [Unknown]
  - Off label use [Unknown]

NARRATIVE: CASE EVENT DATE: 20200305
